FAERS Safety Report 17154627 (Version 1)
Quarter: 2019Q4

REPORT INFORMATION
  Report Type: Report from Study
  Country: None (occurrence: US)
  Receive Date: 20191214
  Receipt Date: 20191214
  Transmission Date: 20200122
  Serious: Yes (Other)
  Sender: FDA-Public Use
  Company Number: US-ABBVIE-19K-163-3195528-00

PATIENT
  Sex: Female

DRUGS (1)
  1. HUMIRA [Suspect]
     Active Substance: ADALIMUMAB
     Indication: RHEUMATOID ARTHRITIS
     Route: 058

REACTIONS (2)
  - Nasopharyngitis [Not Recovered/Not Resolved]
  - Systemic lupus erythematosus [Unknown]

NARRATIVE: CASE EVENT DATE: 2019
